FAERS Safety Report 12216765 (Version 1)
Quarter: 2016Q1

REPORT INFORMATION
  Report Type: Spontaneous
  Country: US (occurrence: None)
  Receive Date: 20160328
  Receipt Date: 20160328
  Transmission Date: 20160526
  Serious: Yes (Other)
  Sender: FDA-Public Use
  Company Number: None

PATIENT
  Age: 63 Year
  Sex: Female

DRUGS (1)
  1. ESTRADIOL, 0.05 MG MYLAN [Suspect]
     Active Substance: ESTRADIOL
     Route: 062
     Dates: start: 20151112, end: 20160324

REACTIONS (2)
  - Product quality issue [None]
  - Rash [None]

NARRATIVE: CASE EVENT DATE: 20151112
